FAERS Safety Report 24747190 (Version 2)
Quarter: 2025Q1

REPORT INFORMATION
  Report Type: Spontaneous
  Country: NL (occurrence: NL)
  Receive Date: 20241218
  Receipt Date: 20250127
  Transmission Date: 20250408
  Serious: Yes (Other)
  Sender: TEVA
  Company Number: None

PATIENT
  Age: 51 Year
  Sex: Male
  Weight: 70 kg

DRUGS (1)
  1. AMLODIPINE [Suspect]
     Active Substance: AMLODIPINE BESYLATE
     Indication: Product used for unknown indication
     Dosage: 1X PER DAY, 1 TABLET, BRAND NAME NOT SPECIFIED
     Route: 048
     Dates: start: 20051215

REACTIONS (4)
  - Ophthalmoplegia [Recovered/Resolved]
  - Flushing [Recovered/Resolved]
  - Food interaction [Recovered/Resolved]
  - Diplopia [Recovered/Resolved]
